FAERS Safety Report 20115577 (Version 2)
Quarter: 2021Q4

REPORT INFORMATION
  Report Type: Spontaneous
  Country: US (occurrence: None)
  Receive Date: 20211126
  Receipt Date: 20211226
  Transmission Date: 20220303
  Serious: Yes (Other)
  Sender: FDA-Public Use
  Company Number: US-ROCHE-2964366

PATIENT
  Sex: Male

DRUGS (1)
  1. ESBRIET [Suspect]
     Active Substance: PIRFENIDONE
     Indication: Idiopathic pulmonary fibrosis
     Route: 048

REACTIONS (7)
  - Kidney infection [Unknown]
  - Hypoacusis [Unknown]
  - Dyspnoea [Unknown]
  - Back disorder [Unknown]
  - Arthralgia [Unknown]
  - Gait disturbance [Unknown]
  - Productive cough [Unknown]
